FAERS Safety Report 8286944-1 (Version None)
Quarter: 2012Q2

REPORT INFORMATION
  Report Type: 
  Country: None (occurrence: None)
  Receive Date: 20120416
  Receipt Date: 20120402
  Transmission Date: 20120825
  Serious: Yes (Other)
  Sender: FDA-Public Use
  Company Number: FR-AMGEN-FRASP2012021408

PATIENT
  Age: 21 Year
  Sex: Female

DRUGS (1)
  1. ENBREL [Suspect]
     Indication: PSORIASIS
     Dosage: 50 MG, 2X/WEEK
     Dates: start: 20120319, end: 20120326

REACTIONS (12)
  - INJECTION SITE ERYTHEMA [None]
  - CHILLS [None]
  - FATIGUE [None]
  - INJECTION SITE INDURATION [None]
  - INJECTION SITE HAEMORRHAGE [None]
  - MALAISE [None]
  - INJECTION SITE REACTION [None]
  - INJECTION SITE WARMTH [None]
  - LOSS OF CONSCIOUSNESS [None]
  - FEELING HOT [None]
  - INJECTION SITE INFLAMMATION [None]
  - LYMPH NODE PALPABLE [None]
